FAERS Safety Report 7648323-7 (Version None)
Quarter: 2011Q3

REPORT INFORMATION
  Report Type: 
  Country: None (occurrence: None)
  Receive Date: 20110801
  Receipt Date: 20110720
  Transmission Date: 20111222
  Serious: Yes (Other)
  Sender: FDA-Public Use
  Company Number: CA-JNJFOC-20110708119

PATIENT
  Sex: Male
  Weight: 65 kg

DRUGS (5)
  1. REMICADE [Suspect]
     Dosage: 5TH INFUSION
     Route: 042
     Dates: start: 20110718
  2. GRAVOL TAB [Concomitant]
     Indication: PREMEDICATION
     Route: 042
  3. ATENOLOL [Concomitant]
  4. REMICADE [Suspect]
     Indication: CROHN'S DISEASE
     Dosage: 5TH INFUSION
     Route: 042
     Dates: start: 20110209
  5. PERCOCET [Concomitant]

REACTIONS (3)
  - INFUSION RELATED REACTION [None]
  - FISTULA [None]
  - BLOOD PRESSURE INCREASED [None]
